FAERS Safety Report 11444808 (Version 1)
Quarter: 2015Q3

REPORT INFORMATION
  Report Type: Spontaneous
  Country: BG (occurrence: None)
  Receive Date: 20150831
  Receipt Date: 20150831
  Transmission Date: 20151125
  Serious: Yes (Disabling, Other)
  Sender: FDA-Public Use
  Company Number: NSR_02218_2015

PATIENT
  Age: 23 Year
  Sex: Female

DRUGS (3)
  1. RIVOTRIL [Concomitant]
     Active Substance: CLONAZEPAM
  2. METOCLOPRAMIDE. [Suspect]
     Active Substance: METOCLOPRAMIDE
     Indication: NAUSEA
     Dosage: 10-20 MG
     Route: 048
  3. METOCLOPRAMIDE. [Suspect]
     Active Substance: METOCLOPRAMIDE
     Indication: PHOBIA OF EXAMS
     Dosage: 10-20 MG
     Route: 048

REACTIONS (5)
  - Extrapyramidal disorder [None]
  - Oculogyric crisis [None]
  - Decreased activity [None]
  - Emotional distress [None]
  - Drug effect decreased [None]
